FAERS Safety Report 16583421 (Version 2)
Quarter: 2019Q3

REPORT INFORMATION
  Report Type: Spontaneous
  Country: US (occurrence: US)
  Receive Date: 20190717
  Receipt Date: 20190726
  Transmission Date: 20191004
  Serious: Yes (Other)
  Sender: FDA-Public Use
  Company Number: US-PFIZER INC-2019299585

PATIENT
  Age: 56 Year
  Sex: Female
  Weight: 67.12 kg

DRUGS (1)
  1. IBRANCE [Suspect]
     Active Substance: PALBOCICLIB
     Indication: BREAST CANCER FEMALE
     Dosage: 125 MG, CYCLIC [D1-21 Q (EVERY) 28 DAYS]
     Route: 048
     Dates: start: 20190615

REACTIONS (2)
  - Anxiety [Recovered/Resolved]
  - Neutropenia [Unknown]
